FAERS Safety Report 17997139 (Version 3)
Quarter: 2020Q4

REPORT INFORMATION
  Report Type: Report from Study
  Country: PT (occurrence: PT)
  Receive Date: 20200709
  Receipt Date: 20201228
  Transmission Date: 20210113
  Serious: Yes (Hospitalization)
  Sender: FDA-Public Use
  Company Number: PT-BIOGEN-2019BI00797521

PATIENT
  Age: 37 Year
  Sex: Female

DRUGS (2)
  1. TECFIDERA [Suspect]
     Active Substance: DIMETHYL FUMARATE
     Indication: RELAPSING-REMITTING MULTIPLE SCLEROSIS
     Dosage: MAINTENANCE DOSE
     Route: 048
     Dates: start: 20190628
  2. PARACETAMOL [Concomitant]
     Active Substance: ACETAMINOPHEN
     Indication: PRODUCT USED FOR UNKNOWN INDICATION
     Dosage: SOS
     Route: 065

REACTIONS (4)
  - Hot flush [Recovered/Resolved]
  - Constipation [Not Recovered/Not Resolved]
  - Vulvovaginal candidiasis [Recovered/Resolved]
  - Ovarian disorder [Unknown]

NARRATIVE: CASE EVENT DATE: 201910
